FAERS Safety Report 9281499 (Version 2)
Quarter: 2013Q2

REPORT INFORMATION
  Report Type: Report from Study
  Country: NL (occurrence: NL)
  Receive Date: 20130509
  Receipt Date: 20130523
  Transmission Date: 20140414
  Serious: Yes (Death)
  Sender: FDA-Public Use
  Company Number: NL-009507513-1305NLD001132

PATIENT
  Age: 49 Year
  Sex: Female
  Weight: 63.7 kg

DRUGS (4)
  1. CASPOFUNGIN ACETATE [Suspect]
     Dosage: 50 MG, QD
     Route: 042
     Dates: start: 20130501, end: 20130502
  2. CYCLOPHOSPHAMIDE [Concomitant]
     Indication: BONE MARROW CONDITIONING REGIMEN
     Dosage: 38 MG, QD
     Route: 042
     Dates: start: 20130422, end: 20130424
  3. ANTILYMPHOCYTE IMMUNOGLOBULIN [Concomitant]
     Indication: BONE MARROW CONDITIONING REGIMEN
     Dosage: 125 MG, QD
     Route: 042
     Dates: start: 20130424, end: 20130427
  4. BUSULFAN [Concomitant]
     Indication: BONE MARROW CONDITIONING REGIMEN
     Dosage: 185 MG, QD
     Route: 042
     Dates: start: 20130427, end: 20130501

REACTIONS (2)
  - Multi-organ failure [Fatal]
  - Neutropenic colitis [Fatal]
